FAERS Safety Report 7751632-4 (Version None)
Quarter: 2011Q3

REPORT INFORMATION
  Report Type: 
  Country: None (occurrence: None)
  Receive Date: 20110914
  Receipt Date: 20110906
  Transmission Date: 20111222
  Serious: Yes (Hospitalization)
  Sender: FDA-Public Use
  Company Number: DE-GENENTECH-319634

PATIENT
  Age: 66 Year
  Sex: Male

DRUGS (1)
  1. RITUXIMAB [Suspect]
     Indication: CHRONIC LYMPHOCYTIC LEUKAEMIA
     Dosage: 500 MG, UNK
     Route: 065
     Dates: start: 20110111, end: 20110401

REACTIONS (4)
  - SEPSIS [None]
  - ACUTE PRERENAL FAILURE [None]
  - NEUTROPENIA [None]
  - FEBRILE NEUTROPENIA [None]
